FAERS Safety Report 20551771 (Version 1)
Quarter: 2022Q1

REPORT INFORMATION
  Report Type: Spontaneous
  Country: AT (occurrence: AT)
  Receive Date: 20220304
  Receipt Date: 20220304
  Transmission Date: 20220423
  Serious: Yes (Hospitalization, Other)
  Sender: FDA-Public Use
  Company Number: None

PATIENT
  Age: 47 Year
  Sex: Female

DRUGS (15)
  1. DOCETAXEL [Suspect]
     Active Substance: DOCETAXEL
     Indication: Breast cancer
     Dosage: Q3W - EVERY 3 WEEKS
     Route: 042
     Dates: start: 20180924, end: 20190123
  2. DENOSUMAB [Suspect]
     Active Substance: DENOSUMAB
     Indication: Breast cancer
     Dosage: ONGOING CHECKED
     Route: 065
     Dates: start: 20180918
  3. DENOSUMAB [Suspect]
     Active Substance: DENOSUMAB
     Dosage: FREQUENCY: Q4W - EVERY 4 WEEKS MOST RECENT DOSE PRIOR TO THE EVENT: 18/SEP/2018
     Route: 058
     Dates: start: 20180918
  4. CAPECITABINE [Suspect]
     Active Substance: CAPECITABINE
     Indication: Breast cancer
     Dosage: FREQUENCY: OTHER MOST RECENT DOSE PRIOR TO THE EVENT: 20210515
     Route: 048
     Dates: start: 20210512, end: 20210513
  5. TRASTUZUMAB [Suspect]
     Active Substance: TRASTUZUMAB
     Indication: Breast cancer
     Dosage: FREQUENCY: Q3W - EVERY 3 WEEKS MOST RECENT DOSE PRIOR TO THE EVENT: 20210512
     Route: 041
     Dates: start: 20180924, end: 20180924
  6. PERTUZUMAB [Suspect]
     Active Substance: PERTUZUMAB
     Indication: Breast cancer
     Dosage: FREQUENCY: Q3W - EVERY 3 WEEKS MOST RECENT DOSE PRIOR TO THE EVENT: 20181015
     Route: 042
     Dates: start: 20180924, end: 20180924
  7. ADO-TRASTUZUMAB EMTANSINE [Suspect]
     Active Substance: ADO-TRASTUZUMAB EMTANSINE
     Indication: Breast cancer
     Dosage: LAST DRUG ADMINISTRATION PRIOR TO AE- 21/APR/2021
     Route: 042
     Dates: start: 20201001
  8. DRONABINOL [Concomitant]
     Active Substance: DRONABINOL
     Indication: Product used for unknown indication
     Dosage: ONGOING CHECKED
     Dates: start: 20210304
  9. PRAM [Concomitant]
     Indication: Product used for unknown indication
     Dosage: ONGOING CHECKED
  10. ASCORBIC ACID, CALCIUM PHOSPHATE, CITRIC ACID, COLECALCIFEROL [Concomitant]
     Indication: Product used for unknown indication
     Dosage: ONGOING CHECKED
     Dates: start: 20190827
  11. ZOFRAN [Concomitant]
     Active Substance: ONDANSETRON HYDROCHLORIDE
     Indication: Product used for unknown indication
     Dosage: ONGOING CHECKED
     Dates: start: 20211213
  12. KEPPRA [Concomitant]
     Active Substance: LEVETIRACETAM
     Indication: Epilepsy
     Dosage: ONGOING CHECKED
     Dates: start: 20210513
  13. DEXAMETHASONE [Concomitant]
     Active Substance: DEXAMETHASONE
     Indication: Product used for unknown indication
     Dates: start: 20211213
  14. ALPRAZOLAM [Concomitant]
     Active Substance: ALPRAZOLAM
     Indication: Product used for unknown indication
     Dosage: ONGOING CHECKED
     Dates: start: 20181114
  15. LOVENOX [Concomitant]
     Active Substance: ENOXAPARIN SODIUM
     Indication: Product used for unknown indication
     Dates: start: 20211124, end: 20211124

REACTIONS (4)
  - Soft tissue infection [Recovered/Resolved]
  - Syncope [Recovered/Resolved]
  - Hypokalaemia [Recovered/Resolved]
  - Diarrhoea [Recovered/Resolved]

NARRATIVE: CASE EVENT DATE: 20211123
